FAERS Safety Report 7654006-X (Version None)
Quarter: 2011Q3

REPORT INFORMATION
  Report Type: 
  Country: None (occurrence: None)
  Receive Date: 20110803
  Receipt Date: 20110726
  Transmission Date: 20111222
  Serious: Yes (Other)
  Sender: FDA-Public Use
  Company Number: US-JNJFOC-20110711628

PATIENT
  Sex: Female
  Weight: 73.48 kg

DRUGS (3)
  1. LEVOTHYROXINE SODIUM [Concomitant]
     Indication: HYPOTHYROIDISM
     Route: 065
  2. TOPAMAX [Suspect]
     Indication: COMPLEX PARTIAL SEIZURES
     Route: 048
     Dates: start: 20050101, end: 20090101
  3. VITAMINS NOS [Concomitant]
     Indication: OSTEOPOROSIS PROPHYLAXIS
     Route: 065

REACTIONS (4)
  - ALOPECIA [None]
  - OVARIAN CYST [None]
  - COMPLEX PARTIAL SEIZURES [None]
  - DRUG DOSE OMISSION [None]
